FAERS Safety Report 21342190 (Version 4)
Quarter: 2022Q4

REPORT INFORMATION
  Report Type: Other
  Country: DE (occurrence: DE)
  Receive Date: 20220916
  Receipt Date: 20221024
  Transmission Date: 20230113
  Serious: Yes (Hospitalization, Other)
  Sender: FDA-Public Use
  Company Number: None

PATIENT
  Age: 60 Year
  Sex: Male

DRUGS (2)
  1. TACROLIMUS [Suspect]
     Active Substance: TACROLIMUS
     Indication: Prophylaxis against transplant rejection
     Dosage: 1MG - 3MG, UNKNOWN FREQ.
     Route: 065
     Dates: start: 2007
  2. TACROLIMUS [Suspect]
     Active Substance: TACROLIMUS
     Indication: Liver transplant

REACTIONS (22)
  - Biliary obstruction [Unknown]
  - Vitreous haemorrhage [Unknown]
  - Erectile dysfunction [Not Recovered/Not Resolved]
  - Erectile dysfunction [Recovered/Resolved with Sequelae]
  - Intervertebral disc protrusion [Unknown]
  - Phimosis [Unknown]
  - Penile size reduced [Recovered/Resolved with Sequelae]
  - Penile curvature [Not Recovered/Not Resolved]
  - Inguinal hernia [Unknown]
  - Prostatic disorder [Unknown]
  - Polyneuropathy [Unknown]
  - Blindness unilateral [Not Recovered/Not Resolved]
  - Diabetes mellitus [Unknown]
  - Impaired quality of life [Unknown]
  - Memory impairment [Unknown]
  - Abdominal discomfort [Unknown]
  - Spinal disorder [Unknown]
  - Urine analysis abnormal [Unknown]
  - Retinal vein thrombosis [Unknown]
  - Muscle spasms [Unknown]
  - Tinnitus [Unknown]
  - Pruritus [Unknown]

NARRATIVE: CASE EVENT DATE: 20070101
